FAERS Safety Report 5213756-5 (Version None)
Quarter: 2007Q1

REPORT INFORMATION
  Report Type: 
  Country: None (occurrence: None)
  Receive Date: 20070119
  Receipt Date: 20070111
  Transmission Date: 20070707
  Serious: Yes (Other)
  Sender: FDA-Public Use
  Company Number: DE-PFIZER INC-2006154279

PATIENT
  Sex: Female
  Weight: 70 kg

DRUGS (4)
  1. ATORVASTATIN CALCIUM [Suspect]
     Route: 048
  2. METFORMIN [Concomitant]
     Route: 048
  3. METO-TABLINEN [Concomitant]
     Route: 048
  4. TRIAMTEREN [Concomitant]
     Route: 048

REACTIONS (6)
  - BURNING SENSATION [None]
  - CARDIOVASCULAR DISORDER [None]
  - DIZZINESS [None]
  - PAIN IN EXTREMITY [None]
  - PRURITUS [None]
  - RASH MACULAR [None]
